FAERS Safety Report 10978110 (Version 1)
Quarter: 2015Q1

REPORT INFORMATION
  Report Type: Spontaneous
  Country: AU (occurrence: None)
  Receive Date: 20150331
  Receipt Date: 20150331
  Transmission Date: 20150721
  Serious: Yes (Life-Threatening, Hospitalization)
  Sender: FDA-Public Use
  Company Number: FK201501517

PATIENT
  Sex: Male

DRUGS (1)
  1. OCTREOTIDE INJECTION (MANUFACTURER UNKNOWN) (OCTREOTIDE ACETATE) (OCTREOTIDE ACETATE) [Suspect]
     Active Substance: OCTREOTIDE
     Indication: PRODUCT USED FOR UNKNOWN INDICATION

REACTIONS (2)
  - Anaphylactic reaction [None]
  - Off label use [None]
